FAERS Safety Report 8999662 (Version 1)
Quarter: 2013Q1

REPORT INFORMATION
  Report Type: Spontaneous
  Country: US (occurrence: US)
  Receive Date: 20130102
  Receipt Date: 20130102
  Transmission Date: 20140127
  Serious: Yes (Other)
  Sender: FDA-Public Use
  Company Number: US-WATSON-2012-22867

PATIENT
  Sex: Female
  Weight: 57 kg

DRUGS (1)
  1. NOR-QD [Suspect]
     Indication: PRODUCT USED FOR UNKNOWN INDICATION
     Dosage: EVERY DAY
     Route: 048
     Dates: start: 2011

REACTIONS (11)
  - Chest pain [Not Recovered/Not Resolved]
  - Cerebrovascular accident [Unknown]
  - Panic attack [Unknown]
  - Suicidal ideation [Unknown]
  - Schizophrenia [Unknown]
  - Loss of consciousness [Unknown]
  - Depression [Not Recovered/Not Resolved]
  - Epistaxis [Recovered/Resolved]
  - Menstruation irregular [Not Recovered/Not Resolved]
  - Amenorrhoea [None]
  - Vaginal haemorrhage [None]
